FAERS Safety Report 5671257-4 (Version None)
Quarter: 2008Q1

REPORT INFORMATION
  Report Type: 
  Country: None (occurrence: None)
  Receive Date: 20080318
  Receipt Date: 20080307
  Transmission Date: 20080703
  Serious: Yes (Other)
  Sender: FDA-Public Use
  Company Number: US-PFIZER INC-2008001398

PATIENT
  Age: 52 Year
  Sex: Male
  Weight: 110.7 kg

DRUGS (1)
  1. LIPITOR [Suspect]

REACTIONS (2)
  - APLASTIC ANAEMIA [None]
  - THROMBOCYTOPENIA [None]
